FAERS Safety Report 22165726 (Version 1)
Quarter: 2023Q2

REPORT INFORMATION
  Report Type: Spontaneous
  Country: TR (occurrence: TR)
  Receive Date: 20230403
  Receipt Date: 20230403
  Transmission Date: 20230722
  Serious: Yes (Hospitalization, Other)
  Sender: FDA-Public Use
  Company Number: TR-MLMSERVICE-20230320-4169033-2

PATIENT
  Age: 16 Year
  Sex: Female

DRUGS (17)
  1. CLOZAPINE [Suspect]
     Active Substance: CLOZAPINE
     Indication: Obsessive-compulsive disorder
     Dates: start: 2022
  2. FLUVOXAMINE [Suspect]
     Active Substance: FLUVOXAMINE
     Indication: Obsessive-compulsive disorder
     Dosage: LOWER DOSE
     Dates: start: 2022, end: 2022
  3. RISPERIDONE [Concomitant]
     Active Substance: RISPERIDONE
     Indication: Irritability
  4. CLOMIPRAMINE [Concomitant]
     Active Substance: CLOMIPRAMINE
     Indication: Obsessive-compulsive disorder
     Dates: start: 2021
  5. VALPROATE SODIUM [Concomitant]
     Active Substance: VALPROATE SODIUM
     Indication: Obsessive-compulsive disorder
     Dates: start: 2021
  6. GABAPENTIN [Concomitant]
     Active Substance: GABAPENTIN
     Indication: Obsessive-compulsive disorder
     Dates: start: 2021
  7. PROPRANOLOL [Concomitant]
     Active Substance: PROPRANOLOL HYDROCHLORIDE
  8. ARIPIPRAZOLE [Concomitant]
     Active Substance: ARIPIPRAZOLE
     Indication: Obsessive-compulsive disorder
     Dates: start: 2022
  9. TROPICAMIDE [Concomitant]
     Active Substance: TROPICAMIDE
     Indication: Salivary hypersecretion
     Dates: start: 2021
  10. BIPERIDEN [Concomitant]
     Active Substance: BIPERIDEN
     Indication: Obsessive-compulsive disorder
     Dates: start: 2021
  11. LITHIUM [Concomitant]
     Active Substance: LITHIUM
     Indication: Obsessive-compulsive disorder
     Dates: start: 2021
  12. CLOZAPINE [Suspect]
     Active Substance: CLOZAPINE
     Indication: Obsessive-compulsive disorder
     Dates: start: 2021
  13. CLOMIPRAMINE [Concomitant]
     Active Substance: CLOMIPRAMINE
     Indication: Obsessive-compulsive disorder
     Dates: start: 2022
  14. FLUVOXAMINE [Suspect]
     Active Substance: FLUVOXAMINE
     Indication: Obsessive-compulsive disorder
     Dates: start: 2022
  15. FLUVOXAMINE [Suspect]
     Active Substance: FLUVOXAMINE
     Indication: Obsessive-compulsive disorder
     Dosage: DOSE INCREASE
     Dates: start: 2022, end: 2022
  16. FLUVOXAMINE [Suspect]
     Active Substance: FLUVOXAMINE
     Indication: Obsessive-compulsive disorder
     Dates: start: 2021
  17. LITHIUM [Concomitant]
     Active Substance: LITHIUM
     Indication: Obsessive-compulsive disorder
     Dates: start: 2021

REACTIONS (1)
  - Mania [Unknown]

NARRATIVE: CASE EVENT DATE: 20220101
